FAERS Safety Report 4597589-9 (Version None)
Quarter: 2005Q1

REPORT INFORMATION
  Report Type: 
  Country: None (occurrence: None)
  Receive Date: 20050228
  Receipt Date: 20050228
  Transmission Date: 20050727
  Serious: Yes (Life-Threatening, Hospitalization)
  Sender: FDA-Public Use
  Company Number: None

PATIENT
  Age: 38 Year
  Sex: Male
  Weight: 94.8018 kg

DRUGS (1)
  1. ALLOPURINOL [Suspect]
     Indication: GOUT
     Dosage: 1 TAB DAILY ORAL
     Route: 048
     Dates: start: 20050117, end: 20050210

REACTIONS (4)
  - CONJUNCTIVITIS INFECTIVE [None]
  - INFLUENZA LIKE ILLNESS [None]
  - PHARYNGITIS STREPTOCOCCAL [None]
  - STEVENS-JOHNSON SYNDROME [None]
